FAERS Safety Report 8021829-7 (Version None)
Quarter: 2011Q4

REPORT INFORMATION
  Report Type: 
  Country: None (occurrence: None)
  Receive Date: 20111230
  Receipt Date: 20111216
  Transmission Date: 20120403
  Serious: Yes (Hospitalization)
  Sender: FDA-Public Use
  Company Number: 1000025995

PATIENT
  Age: 38 Year
  Sex: Female

DRUGS (7)
  1. KLIPAL (CODEINE PHOSPHATE, PARACETAMOL) (500 MILLIGRAM, TABLETS) [Suspect]
     Indication: PARONYCHIA
     Dosage: ORAL
     Route: 048
     Dates: start: 20081210, end: 20081231
  2. FUNGIZONE [Suspect]
     Indication: PARONYCHIA
     Dosage: ORAL
     Route: 048
     Dates: start: 20081222
  3. EFFERALGAN CODEINE (CODEINE PHOSPHATE, PARACETAMOL) (TABLETS) [Suspect]
     Indication: PARONYCHIA
     Dosage: ORAL
     Route: 048
     Dates: start: 20081210, end: 20081231
  4. PROPOFAN (CAFFEINE, CARBASALATE CALCIUM, CHLORPHENAMINE MALEATE, DEXTR [Suspect]
     Indication: PARONYCHIA
     Dosage: ORAL
     Route: 048
     Dates: start: 20081210, end: 20081231
  5. FOSFOMYCIN (FOSFOMYCIN TROMETAMOL) (GRANULATE) [Suspect]
     Indication: URINARY TRACT INFECTION
     Dosage: (3 GM, ONCE), ORAL
     Route: 048
     Dates: start: 20081221, end: 20081221
  6. PYOSTACINE (PRISTINAMYCIN) [Suspect]
     Indication: PARONYCHIA
     Dosage: ORAL
     Route: 048
     Dates: start: 20081201, end: 20081210
  7. KETOPROFEN [Suspect]
     Indication: PARONYCHIA
     Dosage: ORAL
     Route: 048
     Dates: start: 20081210, end: 20081231

REACTIONS (2)
  - ABORTION INDUCED [None]
  - MATERNAL EXPOSURE DURING PREGNANCY [None]
